FAERS Safety Report 21826619 (Version 3)
Quarter: 2023Q1

REPORT INFORMATION
  Report Type: Report from Study
  Country: US (occurrence: US)
  Receive Date: 20230106
  Receipt Date: 20230131
  Transmission Date: 20230417
  Serious: Yes (Hospitalization)
  Sender: FDA-Public Use
  Company Number: US-ABBVIE-4257759

PATIENT
  Sex: Female

DRUGS (2)
  1. IMBRUVICA [Suspect]
     Active Substance: IBRUTINIB
     Indication: Chronic lymphocytic leukaemia
     Route: 048
     Dates: start: 20221112
  2. IMBRUVICA [Suspect]
     Active Substance: IBRUTINIB
     Indication: Chronic lymphocytic leukaemia
     Route: 048
     Dates: start: 20221120

REACTIONS (7)
  - Oxygen saturation decreased [Recovering/Resolving]
  - Fatigue [Unknown]
  - Lethargy [Unknown]
  - Platelet count increased [Unknown]
  - White blood cell count decreased [Unknown]
  - Red blood cell count increased [Unknown]
  - Dyspnoea [Unknown]
